FAERS Safety Report 18705510 (Version 2)
Quarter: 2021Q1

REPORT INFORMATION
  Report Type: Spontaneous
  Country: IT (occurrence: IT)
  Receive Date: 20210106
  Receipt Date: 20210118
  Transmission Date: 20210419
  Serious: Yes (Other)
  Sender: FDA-Public Use
  Company Number: IT-AUROBINDO-AUR-APL-2021-000004

PATIENT
  Age: 41 Year
  Sex: Female

DRUGS (12)
  1. FLUOROURACIL. [Suspect]
     Active Substance: FLUOROURACIL
     Indication: METASTASES TO OVARY
  2. FLUOROURACIL. [Suspect]
     Active Substance: FLUOROURACIL
     Indication: CYSTADENOCARCINOMA PANCREAS
     Dosage: 400 MILLIGRAM/SQ. METER, EVERY 2 WEEKS
     Route: 040
     Dates: start: 2019, end: 2019
  3. IRINOTECAN [Suspect]
     Active Substance: IRINOTECAN
     Indication: CYSTADENOCARCINOMA PANCREAS
  4. OXALIPLATIN. [Suspect]
     Active Substance: OXALIPLATIN
     Indication: METASTASES TO PERITONEUM
     Dosage: 85 MILLIGRAM/SQ. METER, EVERY 2 WEEKS
     Route: 065
     Dates: start: 2019, end: 202001
  5. OXALIPLATIN. [Suspect]
     Active Substance: OXALIPLATIN
     Indication: METASTASES TO OVARY
  6. LEUCOVORIN. [Suspect]
     Active Substance: LEUCOVORIN
     Indication: METASTASES TO OVARY
  7. IRINOTECAN [Suspect]
     Active Substance: IRINOTECAN
     Indication: METASTASES TO PERITONEUM
     Dosage: 180 MILLIGRAM/SQ. METER, EVERY 2 WEEKS
     Route: 065
     Dates: start: 2019, end: 202001
  8. LEUCOVORIN. [Suspect]
     Active Substance: LEUCOVORIN
     Indication: CYSTADENOCARCINOMA PANCREAS
  9. OXALIPLATIN. [Suspect]
     Active Substance: OXALIPLATIN
     Indication: CYSTADENOCARCINOMA PANCREAS
  10. IRINOTECAN [Suspect]
     Active Substance: IRINOTECAN
     Indication: METASTASES TO OVARY
  11. FLUOROURACIL. [Suspect]
     Active Substance: FLUOROURACIL
     Indication: METASTASES TO PERITONEUM
     Dosage: 2400 MILLIGRAM/SQ. METER, 12 CYCLE (46?HOUR CONTINUOUS INFUSION, EVERY 2 WEEKS)
     Route: 065
     Dates: start: 2019, end: 202001
  12. LEUCOVORIN. [Suspect]
     Active Substance: LEUCOVORIN
     Indication: METASTASES TO PERITONEUM
     Dosage: 400 MILLIGRAM/SQ. METER, 12 CYCLE
     Route: 065
     Dates: start: 2019, end: 202001

REACTIONS (3)
  - Toxicity to various agents [Unknown]
  - Vomiting [Unknown]
  - Febrile neutropenia [Unknown]

NARRATIVE: CASE EVENT DATE: 202001
